FAERS Safety Report 24101068 (Version 1)
Quarter: 2024Q3

REPORT INFORMATION
  Report Type: Spontaneous
  Country: US (occurrence: US)
  Receive Date: 20240717
  Receipt Date: 20240717
  Transmission Date: 20241016
  Serious: No
  Sender: NOVO NORDISK
  Company Number: US-NOVOPROD-1151845

PATIENT
  Age: 63 Year
  Sex: Female

DRUGS (2)
  1. OZEMPIC [Suspect]
     Active Substance: SEMAGLUTIDE
     Indication: Type 2 diabetes mellitus
     Dosage: 2MG
     Route: 058
  2. IBUPROFEN [Suspect]
     Active Substance: IBUPROFEN
     Indication: Product used for unknown indication
     Dosage: UNK
     Route: 058

REACTIONS (4)
  - Headache [Recovered/Resolved]
  - Balance disorder [Recovered/Resolved]
  - Injection site discharge [Not Recovered/Not Resolved]
  - Extra dose administered [Not Recovered/Not Resolved]

NARRATIVE: CASE EVENT DATE: 20231208
